FAERS Safety Report 25447002 (Version 1)
Quarter: 2025Q2

REPORT INFORMATION
  Report Type: Spontaneous
  Country: US (occurrence: US)
  Receive Date: 20250617
  Receipt Date: 20250617
  Transmission Date: 20250716
  Serious: No
  Sender: MERCK SHARP & DOHME LLC
  Company Number: US-009507513-2292539

PATIENT
  Age: 44 Year
  Sex: Female

DRUGS (2)
  1. PEMBROLIZUMAB [Suspect]
     Active Substance: PEMBROLIZUMAB
     Dosage: FIRST LINE THERAPY, FOR A TOTAL OF 12 MONTHS MAINTENANCE
  2. etoposide, methotrexate, actinomycin-D (EMA)-EP [Concomitant]

REACTIONS (1)
  - Off label use [Unknown]
